FAERS Safety Report 25163250 (Version 3)
Quarter: 2025Q2

REPORT INFORMATION
  Report Type: Spontaneous
  Country: JP (occurrence: JP)
  Receive Date: 20250404
  Receipt Date: 20250424
  Transmission Date: 20250717
  Serious: Yes (Death, Hospitalization)
  Sender: PFIZER
  Company Number: None

PATIENT
  Age: 46 Year
  Sex: Male
  Weight: 54 kg

DRUGS (29)
  1. DOXORUBICIN HYDROCHLORIDE [Suspect]
     Active Substance: DOXORUBICIN HYDROCHLORIDE
     Indication: B-cell lymphoma
     Route: 065
     Dates: start: 200401
  2. METHYLPREDNISOLONE [Suspect]
     Active Substance: METHYLPREDNISOLONE
     Indication: B-cell lymphoma
     Route: 065
  3. RITUXIMAB [Suspect]
     Active Substance: RITUXIMAB
  4. AMIKACIN [Suspect]
     Active Substance: AMIKACIN
     Indication: Febrile neutropenia
     Dosage: 400 MG, 1X/DAY
     Route: 042
     Dates: start: 20040329, end: 20040401
  5. CYTARABINE [Suspect]
     Active Substance: CYTARABINE
     Indication: B-cell lymphoma
     Dosage: 3200 MG, 1X/DAY
     Route: 042
     Dates: start: 20040427
  6. CYTARABINE [Suspect]
     Active Substance: CYTARABINE
     Indication: B-cell lymphoma
     Route: 042
     Dates: start: 20040319, end: 20040323
  7. DECADRON (DEXAMETHASONE SODIUM PHOSPHATE) [Suspect]
     Active Substance: DEXAMETHASONE SODIUM PHOSPHATE
     Indication: B-cell lymphoma
     Dosage: 40 MG, 1X/DAY
     Route: 042
     Dates: start: 20040427
  8. DECADRON (DEXAMETHASONE SODIUM PHOSPHATE) [Suspect]
     Active Substance: DEXAMETHASONE SODIUM PHOSPHATE
     Indication: B-cell lymphoma
     Dosage: 40 MG, 1X/DAY
     Route: 042
     Dates: start: 20040319, end: 20040323
  9. CYCLOPHOSPHAMIDE [Suspect]
     Active Substance: CYCLOPHOSPHAMIDE
     Indication: B-cell lymphoma
     Dosage: 2000 MG, 1X/DAY
     Route: 042
     Dates: start: 20040319, end: 20040321
  10. CYCLOPHOSPHAMIDE [Suspect]
     Active Substance: CYCLOPHOSPHAMIDE
     Indication: B-cell lymphoma
     Route: 042
     Dates: start: 20040427
  11. GASTER [Suspect]
     Active Substance: FAMOTIDINE
     Indication: Gastric mucosal lesion
     Dosage: 40 MG, 1X/DAY
     Route: 048
     Dates: start: 20040116, end: 20040407
  12. ETOPOSIDE [Suspect]
     Active Substance: ETOPOSIDE
     Indication: B-cell lymphoma
     Dosage: 165 MG, 1X/DAY
     Route: 042
     Dates: start: 20040319, end: 20040323
  13. ETOPOSIDE [Suspect]
     Active Substance: ETOPOSIDE
     Indication: B-cell lymphoma
     Route: 042
     Dates: start: 20040427
  14. GLUTAMINE\SODIUM GUALENATE [Suspect]
     Active Substance: GLUTAMINE\SODIUM GUALENATE
     Indication: Neutrophil count decreased
     Dosage: 2 UG, 1X/DAY
     Route: 048
     Dates: start: 20040116, end: 20040407
  15. MAXIPIME [Suspect]
     Active Substance: CEFEPIME HYDROCHLORIDE
     Indication: Febrile neutropenia
     Dosage: 2 G, 1X/DAY
     Route: 042
     Dates: start: 20040402, end: 20040407
  16. METHYLCOBALAMIN [Suspect]
     Active Substance: METHYLCOBALAMIN
     Indication: Neuropathy peripheral
     Dosage: 1500 UG, 1X/DAY
     Route: 048
     Dates: start: 20040120, end: 20040407
  17. PIPERACILLIN SODIUM [Suspect]
     Active Substance: PIPERACILLIN SODIUM
     Indication: Febrile neutropenia
     Dosage: 4 G, 1X/DAY
     Route: 042
     Dates: start: 20040329, end: 20040401
  18. RITUXAN [Suspect]
     Active Substance: RITUXIMAB
     Indication: B-cell lymphoma
     Dosage: 700 MG, 1X/DAY
     Route: 042
     Dates: start: 20040319, end: 20040319
  19. RITUXAN [Suspect]
     Active Substance: RITUXIMAB
     Indication: B-cell lymphoma
     Route: 042
     Dates: start: 20040427
  20. TOBRAMYCIN SULFATE [Suspect]
     Active Substance: TOBRAMYCIN SULFATE
     Indication: Febrile neutropenia
     Dosage: 120 MG, 1X/DAY
     Route: 042
     Dates: start: 20040402, end: 20040407
  21. VINCRISTINE SULFATE [Suspect]
     Active Substance: VINCRISTINE SULFATE
     Indication: B-cell lymphoma
     Route: 065
     Dates: start: 200401
  22. ALLOPURINOL [Suspect]
     Active Substance: ALLOPURINOL
     Indication: Tumour lysis syndrome
     Dosage: 100 MG, 1X/DAY
     Route: 048
     Dates: start: 20040120, end: 20040407
  23. CYCLOPHOSPHAMIDE [Suspect]
     Active Substance: CYCLOPHOSPHAMIDE
     Dates: start: 200401
  24. CYTARABINE [Suspect]
     Active Substance: CYTARABINE
     Dates: start: 2004
  25. DEXAMETHASONE [Suspect]
     Active Substance: DEXAMETHASONE
  26. ETOPOSIDE [Suspect]
     Active Substance: ETOPOSIDE
     Dates: start: 2004
  27. PREDNISONE [Suspect]
     Active Substance: PREDNISONE
     Dates: start: 200401
  28. CEFEPIME [Suspect]
     Active Substance: CEFEPIME HYDROCHLORIDE
     Dates: start: 2004
  29. NEU UP [Concomitant]
     Dosage: 50 UG, 1X/DAY
     Route: 058
     Dates: start: 20040329, end: 20040404

REACTIONS (7)
  - Obliterative bronchiolitis [Fatal]
  - Pneumonia [Fatal]
  - Hypercapnia [Fatal]
  - Neutrophil count decreased [Recovered/Resolved]
  - Febrile neutropenia [Unknown]
  - Stevens-Johnson syndrome [Recovered/Resolved]
  - Lung abscess [Unknown]

NARRATIVE: CASE EVENT DATE: 20040101
